FAERS Safety Report 26034817 (Version 2)
Quarter: 2025Q4

REPORT INFORMATION
  Report Type: Spontaneous
  Country: CN (occurrence: CN)
  Receive Date: 20251112
  Receipt Date: 20251117
  Transmission Date: 20260118
  Serious: Yes (Other)
  Sender: BAYER HEALTHCARE PHARMACEUTICALS INC.
  Company Number: CN-BAYER-2025A148495

PATIENT
  Sex: Female

DRUGS (1)
  1. YAZ [Suspect]
     Active Substance: DROSPIRENONE\ETHINYL ESTRADIOL
     Dosage: UNK
     Route: 048
     Dates: start: 2025

REACTIONS (5)
  - Loss of consciousness [None]
  - Syncope [None]
  - Skin injury [None]
  - Tinnitus [Not Recovered/Not Resolved]
  - Dizziness [None]

NARRATIVE: CASE EVENT DATE: 20250101
